FAERS Safety Report 14608245 (Version 2)
Quarter: 2018Q1

REPORT INFORMATION
  Report Type: Spontaneous
  Country: GR (occurrence: GR)
  Receive Date: 20180307
  Receipt Date: 20180313
  Transmission Date: 20180509
  Serious: Yes (Other)
  Sender: FDA-Public Use
  Company Number: GR-AMGEN-GRCSP2018029115

PATIENT
  Age: 65 Year
  Sex: Female

DRUGS (6)
  1. SALOSPIR [Concomitant]
     Active Substance: ASPIRIN
  2. CONCOR [Concomitant]
     Active Substance: BISOPROLOL FUMARATE
  3. ATACAND [Concomitant]
     Active Substance: CANDESARTAN CILEXETIL
  4. REPATHA [Suspect]
     Active Substance: EVOLOCUMAB
     Indication: CORONARY ARTERY DISEASE
  5. REPATHA [Suspect]
     Active Substance: EVOLOCUMAB
     Indication: PROPHYLAXIS
     Dosage: 140 MG, Q2WK
     Route: 065
     Dates: start: 201801
  6. BRILIQUE [Concomitant]
     Active Substance: TICAGRELOR

REACTIONS (1)
  - Deafness [Not Recovered/Not Resolved]

NARRATIVE: CASE EVENT DATE: 201802
